FAERS Safety Report 5013358-X (Version None)
Quarter: 2006Q2

REPORT INFORMATION
  Report Type: 
  Country: None (occurrence: None)
  Receive Date: 20060530
  Receipt Date: 20060419
  Transmission Date: 20061013
  Serious: Yes (Hospitalization, Other)
  Sender: FDA-Public Use
  Company Number: US-GLAXOSMITHKLINE-A0602480A

PATIENT
  Age: 23 Year
  Sex: Female
  Weight: 55 kg

DRUGS (5)
  1. WELLBUTRIN XL [Suspect]
     Indication: DEPRESSION
     Route: 048
     Dates: end: 20060401
  2. WELLBUTRIN [Suspect]
  3. KLONOPIN [Concomitant]
  4. LAMICTAL [Concomitant]
  5. LEXAPRO [Concomitant]

REACTIONS (3)
  - HALLUCINATION, AUDITORY [None]
  - HALLUCINATION, VISUAL [None]
  - PARANOIA [None]
